FAERS Safety Report 6433732-4 (Version None)
Quarter: 2009Q4

REPORT INFORMATION
  Report Type: 
  Country: None (occurrence: None)
  Receive Date: 20091110
  Receipt Date: 20091029
  Transmission Date: 20100525
  Serious: Yes (Hospitalization)
  Sender: FDA-Public Use
  Company Number: NO-ROCHE-665975

PATIENT
  Sex: Male

DRUGS (6)
  1. DIAZEPAM [Suspect]
     Route: 065
     Dates: start: 20090923, end: 20090923
  2. FENTANYL [Suspect]
     Route: 065
     Dates: start: 20090923, end: 20090923
  3. PANCURONIUM BROMIDE [Suspect]
     Route: 065
     Dates: start: 20090923, end: 20090923
  4. CEFALOTIN [Suspect]
     Route: 065
     Dates: start: 20090923, end: 20090923
  5. THIOPENTAL SODIUM [Suspect]
     Route: 065
     Dates: start: 20090923, end: 20090923
  6. CHLORHEXIDINE GLUCONATE [Concomitant]
     Dates: start: 20090923, end: 20090923

REACTIONS (2)
  - BLOOD PRESSURE DECREASED [None]
  - BRONCHOSPASM [None]
